FAERS Safety Report 17909261 (Version 1)
Quarter: 2020Q2

REPORT INFORMATION
  Report Type: Report from Study
  Country: BR (occurrence: BR)
  Receive Date: 20200617
  Receipt Date: 20200617
  Transmission Date: 20200714
  Serious: Yes (Disabling, Other)
  Sender: FDA-Public Use
  Company Number: NVSC2020BR167323

PATIENT
  Sex: Female

DRUGS (1)
  1. GILENYA [Suspect]
     Active Substance: FINGOLIMOD HYDROCHLORIDE
     Indication: MULTIPLE SCLEROSIS
     Dosage: UNK
     Route: 065
     Dates: start: 2013

REACTIONS (19)
  - Swelling face [Not Recovered/Not Resolved]
  - Pruritus [Not Recovered/Not Resolved]
  - Decreased immune responsiveness [Unknown]
  - JC polyomavirus test positive [Not Recovered/Not Resolved]
  - Fungal infection [Not Recovered/Not Resolved]
  - Visual acuity reduced [Unknown]
  - Movement disorder [Not Recovered/Not Resolved]
  - Muscle spasms [Unknown]
  - Multiple sclerosis relapse [Recovered/Resolved]
  - Retching [Not Recovered/Not Resolved]
  - Muscular weakness [Not Recovered/Not Resolved]
  - Headache [Not Recovered/Not Resolved]
  - Intervertebral disc protrusion [Not Recovered/Not Resolved]
  - Vertebral osteophyte [Not Recovered/Not Resolved]
  - Pain in extremity [Recovered/Resolved]
  - Paraesthesia [Not Recovered/Not Resolved]
  - Sensitive skin [Not Recovered/Not Resolved]
  - Blood cholesterol increased [Unknown]
  - Hypokinesia [Recovered/Resolved]

NARRATIVE: CASE EVENT DATE: 2013
